FAERS Safety Report 15695459 (Version 2)
Quarter: 2019Q1

REPORT INFORMATION
  Report Type: Spontaneous
  Country: FR (occurrence: FR)
  Receive Date: 20181206
  Receipt Date: 20190326
  Transmission Date: 20190417
  Serious: Yes (Other)
  Sender: FDA-Public Use
  Company Number: FR-TEVA-2018-FR-982875

PATIENT
  Age: 83 Year
  Sex: Male
  Weight: 53.5 kg

DRUGS (9)
  1. MIRTAZAPINE. [Suspect]
     Active Substance: MIRTAZAPINE
     Indication: ANXIOLYTIC THERAPY
     Route: 065
     Dates: start: 2017
  2. MIRTAZAPINE. [Suspect]
     Active Substance: MIRTAZAPINE
     Indication: DEPRESSION
     Dosage: 15 MILLIGRAM DAILY;
     Route: 048
     Dates: start: 2017, end: 201810
  3. ACIDE FOLIQUE [Concomitant]
     Active Substance: FOLIC ACID
  4. RELVAR ELLIPTA [Concomitant]
     Active Substance: FLUTICASONE FUROATE\VILANTEROL TRIFENATATE
  5. ASPIRINE PROTECT [Concomitant]
     Active Substance: ASPIRIN
  6. DOLIPRANE [Concomitant]
     Active Substance: ACETAMINOPHEN
  7. NORDAZ 7,5 MG, COMPRIM? S?CABLE [Suspect]
     Active Substance: NORDAZEPAM
     Indication: DEPRESSION
     Dosage: .5 DOSAGE FORMS DAILY;
     Route: 048
     Dates: start: 201707, end: 201810
  8. AMLODIPINE [Concomitant]
     Active Substance: AMLODIPINE BESYLATE
  9. NORDAZ 7,5 MG, COMPRIM? S?CABLE [Suspect]
     Active Substance: NORDAZEPAM
     Indication: ANXIOLYTIC THERAPY
     Dosage: 7.5 MILLIGRAM DAILY;
     Route: 048
     Dates: start: 201707, end: 201810

REACTIONS (3)
  - Rhabdomyolysis [Recovered/Resolved]
  - Acute kidney injury [Recovered/Resolved]
  - Fall [Recovered/Resolved]

NARRATIVE: CASE EVENT DATE: 20181013
